FAERS Safety Report 23675378 (Version 1)
Quarter: 2024Q1

REPORT INFORMATION
  Report Type: Spontaneous
  Country: CA (occurrence: CA)
  Receive Date: 20240327
  Receipt Date: 20240327
  Transmission Date: 20240410
  Serious: Yes (Hospitalization, Other)
  Sender: FDA-Public Use
  Company Number: CA-ABBVIE-5686488

PATIENT
  Age: 74 Year
  Sex: Female

DRUGS (1)
  1. EPCORITAMAB [Suspect]
     Active Substance: EPCORITAMAB
     Indication: Diffuse large B-cell lymphoma
     Dosage: DOSE: 48 MG/0.8ML VIAL FREQUENCY TEXT: CYCLE 2: 48 MG ON DAY 1, 8, 15 AND 22
     Route: 058
     Dates: start: 20240226

REACTIONS (4)
  - Hospitalisation [Unknown]
  - Cancer pain [Unknown]
  - Lymphoma [Unknown]
  - Abdominal distension [Unknown]

NARRATIVE: CASE EVENT DATE: 20240101
